FAERS Safety Report 7439776-8 (Version None)
Quarter: 2011Q2

REPORT INFORMATION
  Report Type: 
  Country: None (occurrence: None)
  Receive Date: 20110427
  Receipt Date: 20110420
  Transmission Date: 20111010
  Serious: Yes (Hospitalization)
  Sender: FDA-Public Use
  Company Number: NL-B.I. PHARMACEUTICALS,INC./RIDGEFIELD-2011-NL-00170NL

PATIENT
  Sex: Female

DRUGS (2)
  1. PREDNISON CURE [Concomitant]
  2. SPIRIVA [Suspect]

REACTIONS (2)
  - GASTROINTESTINAL DISORDER [None]
  - CONSTIPATION [None]
